FAERS Safety Report 4357234-4 (Version None)
Quarter: 2004Q2

REPORT INFORMATION
  Report Type: 
  Country: None (occurrence: None)
  Receive Date: 20040507
  Receipt Date: 20040420
  Transmission Date: 20050107
  Serious: Yes (Death)
  Sender: FDA-Public Use
  Company Number: USA021022158

PATIENT
  Age: 57 Year
  Sex: Female
  Weight: 132 kg

DRUGS (1)
  1. ZYPREXA [Suspect]
     Indication: DEPRESSION

REACTIONS (4)
  - ALCOHOL USE [None]
  - DRUG TOXICITY [None]
  - INTENTIONAL OVERDOSE [None]
  - MULTIPLE DRUG OVERDOSE [None]
